FAERS Safety Report 19353252 (Version 3)
Quarter: 2021Q3

REPORT INFORMATION
  Report Type: Report from Study
  Country: JP (occurrence: JP)
  Receive Date: 20210601
  Receipt Date: 20210712
  Transmission Date: 20211014
  Serious: Yes (Other)
  Sender: FDA-Public Use
  Company Number: JP-TAKEDA-2018TJP030298

PATIENT
  Age: 71 Year
  Sex: Female
  Weight: 50.2 kg

DRUGS (15)
  1. DEXAMETHASONE. [Suspect]
     Active Substance: DEXAMETHASONE
     Indication: PLASMA CELL MYELOMA
     Dosage: 20 MG, 1/WEEK
     Route: 048
     Dates: start: 20181002
  2. BAKTAR [Concomitant]
     Active Substance: SULFAMETHOXAZOLE\TRIMETHOPRIM
     Indication: SUPPORTIVE CARE
     Dosage: 1 DOSAGE FORM, 3/WEEK
     Route: 048
  3. ZOVIRAX [Concomitant]
     Active Substance: ACYCLOVIR
     Indication: SUPPORTIVE CARE
     Dosage: 200 MILLIGRAM, 3/WEEK
     Route: 048
     Dates: start: 20180829, end: 20181105
  4. MYSLEE [Concomitant]
     Active Substance: ZOLPIDEM TARTRATE
     Indication: INSOMNIA
     Dosage: 5 MILLIGRAM, QD
     Route: 048
  5. LENALIDOMIDE [Suspect]
     Active Substance: LENALIDOMIDE
     Dosage: 5 MILLIGRAM, QD
     Route: 048
     Dates: start: 20200401
  6. BAYASPIRIN [Concomitant]
     Active Substance: ASPIRIN
     Indication: SUPPORTIVE CARE
     Dosage: 100 MILLIGRAM, QD
     Route: 048
     Dates: start: 20181002
  7. TAKEPRON [Concomitant]
     Active Substance: LANSOPRAZOLE
     Indication: PROPHYLAXIS
     Dosage: 15 MILLIGRAM, QD
     Route: 048
  8. PURSENNID [SENNOSIDE A+B CALCIUM] [Concomitant]
     Active Substance: SENNOSIDES A AND B
     Indication: CONSTIPATION
     Dosage: 24 MILLIGRAM
     Route: 048
  9. LENALIDOMIDE [Suspect]
     Active Substance: LENALIDOMIDE
     Indication: PLASMA CELL MYELOMA
     Dosage: 5 MILLIGRAM, QD
     Route: 048
     Dates: start: 20181002, end: 20181022
  10. ALLELOCK [Concomitant]
     Active Substance: OLOPATADINE HYDROCHLORIDE
     Indication: PROPHYLAXIS
     Dosage: 5 MILLIGRAM, QD
     Route: 048
     Dates: start: 20181002
  11. IXAZOMIB [Suspect]
     Active Substance: IXAZOMIB
     Indication: PLASMA CELL MYELOMA
     Dosage: 2.3 MILLIGRAM, 1/WEEK
     Route: 048
     Dates: start: 20181002
  12. VALACICLOVIR HYDROCHLORIDE [Concomitant]
     Active Substance: VALACYCLOVIR HYDROCHLORIDE
     Dosage: UNK
     Route: 065
     Dates: start: 20181107
  13. LENALIDOMIDE [Suspect]
     Active Substance: LENALIDOMIDE
     Dosage: 5 MILLIGRAM, QOD
     Route: 048
     Dates: start: 20190123
  14. LENALIDOMIDE [Suspect]
     Active Substance: LENALIDOMIDE
     Dosage: 5 MILLIGRAM, QOD
     Route: 048
     Dates: start: 20200429
  15. AZUNOL [SODIUM GUALENATE] [Concomitant]
     Active Substance: SODIUM GUALENATE
     Indication: INFECTION PROPHYLAXIS
     Dosage: UNK
     Route: 048

REACTIONS (10)
  - Platelet count decreased [Recovering/Resolving]
  - Pelvic fracture [Not Recovered/Not Resolved]
  - Upper respiratory tract inflammation [Recovered/Resolved]
  - Eczema [Not Recovered/Not Resolved]
  - Upper respiratory tract inflammation [Recovered/Resolved]
  - Hypocalcaemia [Recovered/Resolved]
  - Neutrophil count decreased [Recovered/Resolved]
  - Blood creatinine increased [Not Recovered/Not Resolved]
  - Anaemia [Not Recovered/Not Resolved]
  - Ligament sprain [Recovered/Resolved]

NARRATIVE: CASE EVENT DATE: 20181005
